FAERS Safety Report 11685841 (Version 2)
Quarter: 2016Q1

REPORT INFORMATION
  Report Type: Other
  Country: IT (occurrence: IT)
  Receive Date: 20151030
  Receipt Date: 20160303
  Transmission Date: 20160525
  Serious: Yes (Hospitalization, Other)
  Sender: FDA-Public Use
  Company Number: IT-MYLANLABS-2015M1035996

PATIENT

DRUGS (4)
  1. TERAZOSIN HYDROCHLORIDE. [Concomitant]
     Active Substance: TERAZOSIN HYDROCHLORIDE
     Indication: BENIGN PROSTATIC HYPERPLASIA
     Dosage: 5 MG, UNK
     Route: 048
  2. ALPRAZOLAM. [Suspect]
     Active Substance: ALPRAZOLAM
     Indication: INSOMNIA
     Dosage: 1 MG, PRN
     Route: 048
     Dates: start: 20150604, end: 20150605
  3. ALPRAZOLAM. [Suspect]
     Active Substance: ALPRAZOLAM
     Indication: INSOMNIA
     Dosage: UNK
     Dates: start: 20150605, end: 20150608
  4. VERAPAMIL [Concomitant]
     Active Substance: VERAPAMIL HYDROCHLORIDE
     Indication: PARAESTHESIA
     Dosage: UNK
     Route: 048

REACTIONS (21)
  - Toxicity to various agents [Unknown]
  - Intentional overdose [Unknown]
  - Dysarthria [Unknown]
  - Nystagmus [Unknown]
  - Bradycardia [Unknown]
  - Dehydration [Recovered/Resolved]
  - Hyporeflexia [Unknown]
  - Disorientation [Recovered/Resolved]
  - Conjunctival hyperaemia [Unknown]
  - Gait disturbance [Unknown]
  - Miosis [Unknown]
  - Bradykinesia [Unknown]
  - Self-medication [Unknown]
  - Aphasia [Recovered/Resolved]
  - Acute kidney injury [Recovered/Resolved]
  - Hypotension [Unknown]
  - Drug abuse [Unknown]
  - Confusional state [Recovered/Resolved]
  - Psychomotor hyperactivity [Recovered/Resolved]
  - Sopor [Recovered/Resolved]
  - Electroencephalogram abnormal [Unknown]

NARRATIVE: CASE EVENT DATE: 20150605
